FAERS Safety Report 20111228 (Version 1)
Quarter: 2021Q4

REPORT INFORMATION
  Report Type: Spontaneous
  Country: FI (occurrence: FI)
  Receive Date: 20211125
  Receipt Date: 20211125
  Transmission Date: 20220303
  Serious: Yes (Hospitalization, Other)
  Sender: FDA-Public Use
  Company Number: FI-ORGANON-O2111FIN002318

PATIENT
  Age: 82 Year
  Sex: Male

DRUGS (1)
  1. SINEMET [Suspect]
     Active Substance: CARBIDOPA\LEVODOPA
     Dosage: 2 TABLETS 4 TIMES A DAY
     Route: 048

REACTIONS (2)
  - Cervical vertebral fracture [Unknown]
  - Dysphagia [Unknown]
